FAERS Safety Report 16111278 (Version 1)
Quarter: 2019Q2

REPORT INFORMATION
  Report Type: Spontaneous
  Country: US (occurrence: US)
  Receive Date: 20190322
  Receipt Date: 20190322
  Transmission Date: 20190711
  Serious: Yes (Death)
  Sender: FDA-Public Use
  Company Number: None

PATIENT
  Age: 32 Year
  Sex: Female

DRUGS (1)
  1. NEUPOGEN [Suspect]
     Active Substance: FILGRASTIM
     Indication: BREAST CANCER
     Dosage: ?          OTHER FREQUENCY:DAYS 2,3,4,9,10,11;?
     Route: 058
     Dates: start: 20181110, end: 20190306

REACTIONS (1)
  - Death [None]

NARRATIVE: CASE EVENT DATE: 20190306
